FAERS Safety Report 7340976-6 (Version None)
Quarter: 2011Q1

REPORT INFORMATION
  Report Type: 
  Country: None (occurrence: None)
  Receive Date: 20110309
  Receipt Date: 20100325
  Transmission Date: 20110831
  Serious: No
  Sender: FDA-Public Use
  Company Number: US-ABBOTT-10P-163-0634736-00

PATIENT
  Sex: Female
  Weight: 79.45 kg

DRUGS (2)
  1. LUPRON DEPOT [Suspect]
     Indication: ENDOMETRIOSIS
     Dates: start: 20091106
  2. MULTIPLE VITAMINS [Concomitant]
     Indication: VITAMIN SUPPLEMENTATION

REACTIONS (16)
  - VOMITING [None]
  - GAIT DISTURBANCE [None]
  - WEIGHT INCREASED [None]
  - BACK PAIN [None]
  - INFLUENZA [None]
  - MUSCULAR WEAKNESS [None]
  - NAUSEA [None]
  - VAGINAL HAEMORRHAGE [None]
  - FATIGUE [None]
  - PAIN [None]
  - ARTHRALGIA [None]
  - OEDEMA PERIPHERAL [None]
  - VAGINAL DISCHARGE [None]
  - HEADACHE [None]
  - DYSMENORRHOEA [None]
  - ALOPECIA [None]
